FAERS Safety Report 17891172 (Version 1)
Quarter: 2020Q2

REPORT INFORMATION
  Report Type: Spontaneous
  Country: US (occurrence: US)
  Receive Date: 20200612
  Receipt Date: 20200612
  Transmission Date: 20200714
  Serious: No
  Sender: FDA-Public Use
  Company Number: US-PERRIGO-19US013253

PATIENT
  Age: 41 Year
  Sex: Female
  Weight: 125 kg

DRUGS (4)
  1. MINOXIDIL. [Suspect]
     Active Substance: MINOXIDIL
     Indication: ALOPECIA
     Dosage: 1/2 CAPFUL, QD
     Route: 061
     Dates: start: 201907, end: 201907
  2. MINOXIDIL. [Suspect]
     Active Substance: MINOXIDIL
     Dosage: 1/2 CAPFUL, BID
     Route: 061
     Dates: start: 201907, end: 201908
  3. MINOXIDIL. [Suspect]
     Active Substance: MINOXIDIL
     Dosage: 1/4 CAPFUL, 1 TO 2 TIMES DAILY
     Route: 061
     Dates: start: 20191110, end: 2019
  4. MINOXIDIL. [Suspect]
     Active Substance: MINOXIDIL
     Dosage: 1/2 CAPFUL, TID
     Route: 061
     Dates: start: 201908, end: 20191030

REACTIONS (4)
  - Drug ineffective [Unknown]
  - Overdose [Recovered/Resolved]
  - Inappropriate schedule of product administration [Recovered/Resolved]
  - Off label use [Recovered/Resolved]

NARRATIVE: CASE EVENT DATE: 201907
